FAERS Safety Report 18264705 (Version 1)
Quarter: 2020Q3

REPORT INFORMATION
  Report Type: Spontaneous
  Country: DE (occurrence: DE)
  Receive Date: 20200915
  Receipt Date: 20200915
  Transmission Date: 20201103
  Serious: Yes (Life-Threatening, Hospitalization, Other)
  Sender: FDA-Public Use
  Company Number: DE-AUROBINDO-AUR-APL-2020-047415

PATIENT
  Age: 77 Year
  Sex: Female

DRUGS (13)
  1. SPIRONOLACTONE. [Suspect]
     Active Substance: SPIRONOLACTONE
     Indication: PRODUCT USED FOR UNKNOWN INDICATION
     Dosage: 50 MILLIGRAM (50 MG, 1?0?0?0, TABLETS)
     Route: 048
  2. SITAGLIPTIN [Concomitant]
     Active Substance: SITAGLIPTIN
     Indication: PRODUCT USED FOR UNKNOWN INDICATION
     Dosage: 100 MILLIGRAM (100 MG, 1?0?0?0, TABLETS)
     Route: 048
  3. CARVEDILOL FILM?COATED TABLETS [Suspect]
     Active Substance: CARVEDILOL
     Indication: PRODUCT USED FOR UNKNOWN INDICATION
     Dosage: 6.25 MILLIGRAM (6.25 MG, 1?0?1?0, TABLETS)
     Route: 048
  4. DIGITOXIN [Suspect]
     Active Substance: DIGITOXIN
     Indication: PRODUCT USED FOR UNKNOWN INDICATION
     Dosage: 0.07 MILLIGRAM (0.07 MG, 1?0?0?0, TABLETS)
     Route: 048
  5. TORASEMIDE [Suspect]
     Active Substance: TORSEMIDE
     Indication: PRODUCT USED FOR UNKNOWN INDICATION
     Dosage: 10 MILLIGRAM (10 MG, 1?0?0?0, TABLETS)
     Route: 048
  6. EDOXABAN [Concomitant]
     Active Substance: EDOXABAN TOSYLATE
     Indication: PRODUCT USED FOR UNKNOWN INDICATION
     Dosage: 30 MILLIGRAM (30 MG, 1?0?0?0, TABLETS)
     Route: 048
  7. LACTULOSE. [Concomitant]
     Active Substance: LACTULOSE
     Indication: PRODUCT USED FOR UNKNOWN INDICATION
     Dosage: 10 MILLILITER (10 ML, 1?0?0?0, JUICE)
     Route: 048
  8. PANTOPRAZOLE [Concomitant]
     Active Substance: PANTOPRAZOLE
     Indication: PRODUCT USED FOR UNKNOWN INDICATION
     Dosage: 40 MILLIGRAM (40 MG, 1?0?0?0, TABLETS)
     Route: 048
  9. ZOLPIDEM [Concomitant]
     Active Substance: ZOLPIDEM TARTRATE
     Indication: PRODUCT USED FOR UNKNOWN INDICATION
     Dosage: 10 MILLIGRAM (10 MG, 0?0?0?1, TABLETS)
     Route: 048
  10. FERROUS IODIDE [Concomitant]
     Indication: PRODUCT USED FOR UNKNOWN INDICATION
     Dosage: 100 MILLIGRAM (100 MG, 1?0?0?0, CAPSULE)
     Route: 048
  11. METAMIZOLE [Concomitant]
     Active Substance: METAMIZOLE
     Indication: PRODUCT USED FOR UNKNOWN INDICATION
     Dosage: 500 MILLIGRAM (500 MG, 1?0?0?0, TABLETS)
     Route: 048
  12. METFORMIN [Concomitant]
     Active Substance: METFORMIN HYDROCHLORIDE
     Indication: PRODUCT USED FOR UNKNOWN INDICATION
     Dosage: 1000 MILLIGRAM (1000 MG, 0.5?0?0.5?0, TABLETS)
     Route: 048
  13. LEVOTHYROXINE SODIUM. [Concomitant]
     Active Substance: LEVOTHYROXINE SODIUM
     Indication: PRODUCT USED FOR UNKNOWN INDICATION
     Dosage: 125 MICROGRAM (125 ?G, 1?0?0?0, TABLETS)
     Route: 048

REACTIONS (9)
  - Product monitoring error [Unknown]
  - Tachycardia [Recovering/Resolving]
  - General physical health deterioration [Recovering/Resolving]
  - Syncope [Unknown]
  - Condition aggravated [Recovering/Resolving]
  - Arrhythmia [Recovering/Resolving]
  - Palpitations [Recovering/Resolving]
  - Ventricular arrhythmia [Recovering/Resolving]
  - Bradycardia [Recovering/Resolving]

NARRATIVE: CASE EVENT DATE: 20200301
